FAERS Safety Report 9137981 (Version 3)
Quarter: 2013Q2

REPORT INFORMATION
  Report Type: Report from Study
  Country: US (occurrence: US)
  Receive Date: 20130304
  Receipt Date: 20130618
  Transmission Date: 20140414
  Serious: Yes (Death, Hospitalization)
  Sender: FDA-Public Use
  Company Number: US-ACTELION-A-US2013-80164

PATIENT
  Age: 80 Year
  Sex: Female

DRUGS (2)
  1. VENTAVIS [Suspect]
     Indication: PULMONARY ARTERIAL HYPERTENSION
     Dosage: UNK
     Route: 055
     Dates: end: 20130417
  2. OXYGEN [Concomitant]

REACTIONS (10)
  - Death [Fatal]
  - Chest pain [Unknown]
  - Feeling cold [Unknown]
  - Pallor [Unknown]
  - Hyperhidrosis [Unknown]
  - Dyspnoea [Unknown]
  - Respiration abnormal [Unknown]
  - Dizziness [Unknown]
  - Chills [Recovered/Resolved]
  - Fluid retention [Unknown]
